FAERS Safety Report 5414984-6 (Version None)
Quarter: 2007Q3

REPORT INFORMATION
  Report Type: 
  Country: None (occurrence: None)
  Receive Date: 20070815
  Receipt Date: 20070813
  Transmission Date: 20080115
  Serious: Yes (Hospitalization)
  Sender: FDA-Public Use
  Company Number: AU-BRISTOL-MYERS SQUIBB COMPANY-13875653

PATIENT
  Age: 24 Year
  Sex: Female

DRUGS (5)
  1. ABATACEPT [Suspect]
     Indication: CROHN'S DISEASE
     Dosage: ABATACEPT IP-29:19JUL07 100ML IV. IP-1:21JUN07 350ML IV.IP-15:05JUL07 350ML IV.
     Route: 042
     Dates: start: 20070719, end: 20070719
  2. PLACEBO [Suspect]
     Indication: CROHN'S DISEASE
  3. VENTOLIN [Concomitant]
     Route: 055
     Dates: start: 20020101
  4. PARACETAMOL [Concomitant]
     Dates: start: 20050101
  5. PROMETHAZINE [Concomitant]
     Dates: start: 20050101

REACTIONS (2)
  - ABSCESS [None]
  - BRONCHITIS [None]
